FAERS Safety Report 4472018-4 (Version None)
Quarter: 2004Q4

REPORT INFORMATION
  Report Type: 
  Country: None (occurrence: None)
  Receive Date: 20041007
  Receipt Date: 20040924
  Transmission Date: 20050328
  Serious: Yes (Other)
  Sender: FDA-Public Use
  Company Number: 2004061122

PATIENT
  Age: 70 Year
  Sex: Female

DRUGS (6)
  1. LIPITOR [Suspect]
     Indication: BLOOD CHOLESTEROL INCREASED
     Dosage: 10 MG (10 MG, 1 IN 1 D), ORAL
     Route: 048
     Dates: start: 20040618
  2. ACETAMINOPHEN [Concomitant]
  3. ATENOLOL [Concomitant]
  4. NITROGLYCERIN [Concomitant]
  5. ASPIRIN [Concomitant]
  6. PARAMOL-118 (DIHYDROCODEINE BITARTRATE, PARACETAMOL) [Concomitant]

REACTIONS (4)
  - AMPUTATION [None]
  - BLISTER [None]
  - NAUSEA [None]
  - RASH PRURITIC [None]
